FAERS Safety Report 21904314 (Version 1)
Quarter: 2023Q1

REPORT INFORMATION
  Report Type: Spontaneous
  Country: US (occurrence: None)
  Receive Date: 20230124
  Receipt Date: 20230124
  Transmission Date: 20230418
  Serious: Yes (Hospitalization)
  Sender: FDA-Public Use
  Company Number: None

PATIENT
  Age: 65 Year
  Sex: Female
  Weight: 73.6 kg

DRUGS (1)
  1. RITUXIMAB [Suspect]
     Active Substance: RITUXIMAB
     Dates: end: 20221101

REACTIONS (8)
  - SARS-CoV-2 test positive [None]
  - Wheezing [None]
  - Therapy non-responder [None]
  - Pneumonia [None]
  - Acute respiratory failure [None]
  - Chronic obstructive pulmonary disease [None]
  - White blood cell count decreased [None]
  - White blood cell count increased [None]

NARRATIVE: CASE EVENT DATE: 20221230
